FAERS Safety Report 7255890-4 (Version None)
Quarter: 2011Q1

REPORT INFORMATION
  Report Type: 
  Country: None (occurrence: None)
  Receive Date: 20110129
  Receipt Date: 20100506
  Transmission Date: 20110831
  Serious: No
  Sender: FDA-Public Use
  Company Number: US-ABBOTT-10P-163-0643592-00

PATIENT
  Sex: Male
  Weight: 64.468 kg

DRUGS (5)
  1. PENTASA [Concomitant]
     Indication: CROHN'S DISEASE
  2. OMEPRAZOLE [Concomitant]
     Indication: CROHN'S DISEASE
  3. PREDNISONE [Concomitant]
     Indication: CROHN'S DISEASE
     Dates: start: 20091201
  4. HUMIRA [Suspect]
     Indication: CROHN'S DISEASE
     Route: 058
     Dates: start: 20100408
  5. PREDNISONE [Concomitant]
     Dates: end: 20100410

REACTIONS (8)
  - ECZEMA [None]
  - ABDOMINAL PAIN [None]
  - RASH PRURITIC [None]
  - PROCTALGIA [None]
  - DERMATITIS ACNEIFORM [None]
  - EYE INFLAMMATION [None]
  - EYE PRURITUS [None]
  - HAEMATOCHEZIA [None]
